FAERS Safety Report 7539477-1 (Version None)
Quarter: 2011Q2

REPORT INFORMATION
  Report Type: 
  Country: None (occurrence: None)
  Receive Date: 20110609
  Receipt Date: 20110609
  Transmission Date: 20111010
  Serious: Yes (Hospitalization)
  Sender: FDA-Public Use
  Company Number: None

PATIENT
  Age: 20 Year
  Sex: Male

DRUGS (1)
  1. OMNIPAQUE 300 [Suspect]
     Indication: HEADACHE
     Dosage: 100ML ONCE IV
     Route: 042
     Dates: start: 20110414

REACTIONS (1)
  - ADVERSE DRUG REACTION [None]
